FAERS Safety Report 4316838-5 (Version None)
Quarter: 2004Q1

REPORT INFORMATION
  Report Type: 
  Country: None (occurrence: None)
  Receive Date: 20040309
  Receipt Date: 20031208
  Transmission Date: 20041129
  Serious: Yes (Disabling)
  Sender: FDA-Public Use
  Company Number: A03200302916

PATIENT
  Age: 67 Year
  Sex: Male
  Weight: 63.9572 kg

DRUGS (5)
  1. ELOXATIN [Suspect]
     Indication: METASTASES TO LIVER
     Dosage: VARIABLE: EVERY 21 DAYS AT 180 MG, AND EVERY 30 DAYS AT 230 MG. - INTRAVENOUS NOS
     Route: 042
     Dates: start: 20031007, end: 20031007
  2. ELOXATIN [Suspect]
     Indication: RECTAL CANCER METASTATIC
     Dosage: VARIABLE: EVERY 21 DAYS AT 180 MG, AND EVERY 30 DAYS AT 230 MG. - INTRAVENOUS NOS
     Route: 042
     Dates: start: 20031007, end: 20031007
  3. LACTULOSE [Concomitant]
  4. THIETHYLPERAZINE [Concomitant]
  5. LOPERAMIDE HYDROCHLORIDE [Concomitant]

REACTIONS (6)
  - DYSPNOEA [None]
  - DYSPNOEA EXACERBATED [None]
  - OBSTRUCTIVE AIRWAYS DISORDER [None]
  - OXYGEN SATURATION DECREASED [None]
  - PULMONARY FIBROSIS [None]
  - RALES [None]
